FAERS Safety Report 22709018 (Version 4)
Quarter: 2023Q4

REPORT INFORMATION
  Report Type: Report from Study
  Country: US (occurrence: US)
  Receive Date: 20230717
  Receipt Date: 20231112
  Transmission Date: 20240110
  Serious: Yes (Other)
  Sender: FDA-Public Use
  Company Number: US-ABBVIE-5327430

PATIENT
  Sex: Female

DRUGS (3)
  1. SKYRIZI [Suspect]
     Active Substance: RISANKIZUMAB-RZAA
     Indication: Psoriatic arthropathy
     Route: 058
     Dates: start: 20210527
  2. SKYRIZI [Suspect]
     Active Substance: RISANKIZUMAB-RZAA
     Indication: Psoriasis
  3. TREMFYA [Concomitant]
     Active Substance: GUSELKUMAB
     Indication: Product used for unknown indication

REACTIONS (9)
  - Atrial fibrillation [Unknown]
  - Alopecia areata [Unknown]
  - Madarosis [Unknown]
  - Urticaria [Recovered/Resolved]
  - Psoriasis [Not Recovered/Not Resolved]
  - Urticaria [Unknown]
  - Alopecia [Unknown]
  - Throat tightness [Recovered/Resolved]
  - Dermatitis contact [Unknown]

NARRATIVE: CASE EVENT DATE: 20230101
